FAERS Safety Report 8744234 (Version 3)
Quarter: 2013Q4

REPORT INFORMATION
  Report Type: Spontaneous
  Country: US (occurrence: US)
  Receive Date: 20120824
  Receipt Date: 20131119
  Transmission Date: 20140711
  Serious: Yes (Life-Threatening, Hospitalization, Other)
  Sender: FDA-Public Use
  Company Number: US-009507513-1208USA006123

PATIENT
  Age: 88 Year
  Sex: Male

DRUGS (15)
  1. TICE BCG LIVE [Suspect]
     Indication: BLADDER CANCER
     Dosage: 1/2 DF, QW
     Route: 043
     Dates: start: 20120621, end: 20120621
  2. TICE BCG LIVE [Suspect]
     Dosage: 1/2 DF, QW
     Route: 043
     Dates: start: 201206, end: 201206
  3. TICE BCG LIVE [Suspect]
     Dosage: 1/2 DF, QW
     Route: 043
     Dates: start: 201207, end: 201207
  4. TICE BCG LIVE [Suspect]
     Dosage: 1/2 DF, QW
     Route: 043
     Dates: start: 20120713, end: 20120713
  5. ALLEGRA [Concomitant]
     Dosage: UNK
  6. OXYBUTYNIN [Concomitant]
  7. PROSCAR [Concomitant]
  8. BECONASE [Concomitant]
  9. CALCIUM CARBONATE [Concomitant]
  10. COLACE [Concomitant]
  11. DOXAZOSIN MESYLATE [Concomitant]
  12. LIPITOR [Concomitant]
  13. PROPRANOLOL HYDROCHLORIDE [Concomitant]
  14. TIMOLOL [Concomitant]
  15. XALATAN [Concomitant]

REACTIONS (8)
  - Septic shock [Recovered/Resolved]
  - Urosepsis [Recovered/Resolved]
  - Syncope [Recovered/Resolved]
  - Urinary tract infection [Recovered/Resolved]
  - Underdose [Unknown]
  - Underdose [Unknown]
  - Underdose [Unknown]
  - Underdose [Unknown]
